FAERS Safety Report 6692153-X (Version None)
Quarter: 2010Q2

REPORT INFORMATION
  Report Type: 
  Country: None (occurrence: None)
  Receive Date: 20100422
  Receipt Date: 20090916
  Transmission Date: 20101027
  Serious: No
  Sender: FDA-Public Use
  Company Number: US-ASTRAZENECA-2009SE06794

PATIENT
  Age: 72 Year
  Sex: Female

DRUGS (4)
  1. TOPROL-XL [Suspect]
     Route: 048
  2. ATENOLOL [Suspect]
  3. BENICAR [Suspect]
  4. NORVASC [Suspect]

REACTIONS (1)
  - ALOPECIA [None]
